FAERS Safety Report 6981715-8 (Version None)
Quarter: 2010Q3

REPORT INFORMATION
  Report Type: 
  Country: None (occurrence: None)
  Receive Date: 20100914
  Receipt Date: 20091026
  Transmission Date: 20110219
  Serious: No
  Sender: FDA-Public Use
  Company Number: US-PFIZER INC-2009263939

PATIENT
  Sex: Female
  Weight: 90.7 kg

DRUGS (14)
  1. LYRICA [Suspect]
     Dosage: 75 MG, 1X/DAY
     Dates: start: 20090827
  2. PROTONIX [Concomitant]
     Dosage: 40 MG, UNK
  3. ZESTORETIC [Concomitant]
     Dosage: UNK
  4. PLAVIX [Concomitant]
     Dosage: 75 MG, UNK
  5. CYMBALTA [Concomitant]
     Dosage: 90 MG, UNK
  6. OXYCONTIN [Concomitant]
     Dosage: 20 MG, UNK
  7. BENZONATATE [Concomitant]
     Dosage: UNK
  8. FLEXERIL [Concomitant]
     Dosage: 5 MG, UNK
  9. BIOTIN [Concomitant]
     Dosage: UNK
  10. VITAMIN B6 [Concomitant]
     Dosage: UNK
  11. NATURES OWN REFLUX FREE OMEGA-3 FISH OIL [Concomitant]
     Dosage: UNK
  12. VITAMIN B3 [Concomitant]
     Dosage: 2000 IU/KG, UNK
  13. HUMALOG [Concomitant]
     Indication: DIABETES MELLITUS
  14. LANTUS [Concomitant]
     Indication: DIABETES MELLITUS
     Dosage: UNK

REACTIONS (4)
  - ANXIETY [None]
  - DISTURBANCE IN ATTENTION [None]
  - EUPHORIC MOOD [None]
  - PALPITATIONS [None]
